FAERS Safety Report 13507579 (Version 1)
Quarter: 2017Q2

REPORT INFORMATION
  Report Type: Spontaneous
  Country: US (occurrence: US)
  Receive Date: 20170502
  Receipt Date: 20170502
  Transmission Date: 20170830
  Serious: Yes (Other)
  Sender: FDA-Public Use
  Company Number: None

PATIENT
  Sex: Female

DRUGS (1)
  1. IBRANCE [Suspect]
     Active Substance: PALBOCICLIB
     Indication: BREAST CANCER
     Dosage: FREQUENCY - DAILY FOR 21 DAYS, 7 DAYS OFF
     Route: 048
     Dates: start: 20170405

REACTIONS (2)
  - Therapy change [None]
  - Haemoglobin decreased [None]
